FAERS Safety Report 14607125 (Version 1)
Quarter: 2018Q1

REPORT INFORMATION
  Report Type: Spontaneous
  Country: US (occurrence: US)
  Receive Date: 20180307
  Receipt Date: 20180307
  Transmission Date: 20180509
  Serious: Yes (Hospitalization, Other)
  Sender: FDA-Public Use
  Company Number: US-WEST-WARD PHARMACEUTICALS CORP.-US-H14001-18-01583

PATIENT
  Age: 69 Year
  Sex: Male

DRUGS (5)
  1. ADENOSINE. [Suspect]
     Active Substance: ADENOSINE
     Indication: ARTERIOGRAM CORONARY
     Route: 022
  2. ASPIRIN. [Concomitant]
     Active Substance: ASPIRIN
     Indication: STENT PLACEMENT
     Route: 048
  3. OXYGEN. [Concomitant]
     Active Substance: OXYGEN
     Indication: RADIATION PNEUMONITIS
     Route: 045
  4. TICAGRELOR. [Interacting]
     Active Substance: TICAGRELOR
     Indication: STENT PLACEMENT
     Route: 048
  5. OXYGEN. [Concomitant]
     Active Substance: OXYGEN
     Route: 045

REACTIONS (6)
  - Feeling abnormal [Recovered/Resolved]
  - Sinus arrest [Recovered/Resolved]
  - Loss of consciousness [Recovered/Resolved]
  - Dyspnoea [Recovering/Resolving]
  - Off label use [Unknown]
  - Drug interaction [Unknown]
